FAERS Safety Report 6129407-1 (Version None)
Quarter: 2009Q1

REPORT INFORMATION
  Report Type: 
  Country: None (occurrence: None)
  Receive Date: 20090324
  Receipt Date: 20090312
  Transmission Date: 20090719
  Serious: Yes (Death)
  Sender: FDA-Public Use
  Company Number: US-JNJFOC-20090105310

PATIENT
  Sex: Female
  Weight: 102.06 kg

DRUGS (3)
  1. REMICADE [Suspect]
     Indication: RHEUMATOID ARTHRITIS
     Dosage: 4 INFUSIONS
     Route: 042
  2. RHEUMATREX [Concomitant]
     Indication: RHEUMATOID ARTHRITIS
  3. TREXALL [Concomitant]
     Indication: RHEUMATOID ARTHRITIS

REACTIONS (4)
  - DEATH [None]
  - MYOCARDIAL INFARCTION [None]
  - PNEUMONIA [None]
  - RENAL FAILURE ACUTE [None]
